FAERS Safety Report 24356808 (Version 1)
Quarter: 2024Q3

REPORT INFORMATION
  Report Type: Spontaneous
  Country: US (occurrence: None)
  Receive Date: 20240923
  Receipt Date: 20240923
  Transmission Date: 20241016
  Serious: Yes (Hospitalization)
  Sender: Public
  Company Number: None

PATIENT
  Age: 57 Year
  Sex: Female

DRUGS (1)
  1. AMBRISENTAN [Suspect]
     Active Substance: AMBRISENTAN
     Indication: Pulmonary hypertension
     Dosage: 5MG BID ORAL ?
     Route: 048
     Dates: start: 20150601

REACTIONS (6)
  - Pyrexia [None]
  - Chills [None]
  - Myalgia [None]
  - Asthenia [None]
  - Systemic inflammatory response syndrome [None]
  - Pneumonia [None]

NARRATIVE: CASE EVENT DATE: 20240918
